FAERS Safety Report 25960345 (Version 1)
Quarter: 2025Q4

REPORT INFORMATION
  Report Type: Report from Study
  Country: US (occurrence: US)
  Receive Date: 20251026
  Receipt Date: 20251026
  Transmission Date: 20260117
  Serious: Yes (Hospitalization, Other)
  Sender: IPSEN BIOPHARMACEUTICALS, INC.
  Company Number: US-IPSEN Group, Research and Development-2025-12061

PATIENT
  Age: 73 Year
  Sex: Female

DRUGS (2)
  1. BYLVAY [Suspect]
     Active Substance: ODEVIXIBAT
     Indication: Progressive familial intrahepatic cholestasis
     Dosage: TAKE 3 CAPSULES ONCE DAILY TOTAL 3600 MCG
     Route: 048
     Dates: start: 20250313
  2. BYLVAY [Suspect]
     Active Substance: ODEVIXIBAT
     Indication: Liver disorder

REACTIONS (4)
  - Liver operation [Unknown]
  - Pruritus [Unknown]
  - Insomnia [Unknown]
  - Off label use [Unknown]

NARRATIVE: CASE EVENT DATE: 20251020
